FAERS Safety Report 17430654 (Version 1)
Quarter: 2020Q1

REPORT INFORMATION
  Report Type: Spontaneous
  Country: US (occurrence: US)
  Receive Date: 20200203
  Receipt Date: 20200203
  Transmission Date: 20200409
  Serious: Yes (Hospitalization)
  Sender: FDA-Public Use
  Company Number: None

PATIENT
  Age: 61 Year
  Sex: Female
  Weight: 49.9 kg

DRUGS (10)
  1. ONDANSETRON 4MG [Concomitant]
     Active Substance: ONDANSETRON
  2. STELARA [Suspect]
     Active Substance: USTEKINUMAB
     Dosage: EVERY 8 WEEKS
     Dates: start: 201911
  3. COPPER GLUCONATE [Concomitant]
     Active Substance: COPPER GLUCONATE
  4. PANTOPRAZOLE [Concomitant]
     Active Substance: PANTOPRAZOLE
  5. VITAMIN A [Concomitant]
     Active Substance: VITAMIN A
  6. CHOLECALCIFEROL [Concomitant]
     Active Substance: CHOLECALCIFEROL
  7. VITAMIN D-2 50000 UNITS [Concomitant]
  8. FERROUS SULFATE. [Concomitant]
     Active Substance: FERROUS SULFATE
  9. HYDROXYZINE HCL [Concomitant]
     Active Substance: HYDROXYZINE HYDROCHLORIDE
  10. MULTIVITAMINS [Concomitant]
     Active Substance: VITAMINS

REACTIONS (5)
  - Anaemia [None]
  - Gastric disorder [None]
  - Diverticulum intestinal [None]
  - Gastrointestinal haemorrhage [None]
  - Hypotension [None]

NARRATIVE: CASE EVENT DATE: 20191214
